FAERS Safety Report 11412986 (Version 1)
Quarter: 2015Q3

REPORT INFORMATION
  Report Type: Spontaneous
  Country: US (occurrence: US)
  Receive Date: 20150821
  Receipt Date: 20150821
  Transmission Date: 20151125
  Serious: No
  Sender: FDA-Public Use
  Company Number: US-ELI_LILLY_AND_COMPANY-US201207008928

PATIENT
  Sex: Male

DRUGS (1)
  1. HUMULIN 70/30 [Suspect]
     Active Substance: INSULIN HUMAN
     Indication: DIABETES MELLITUS
     Dosage: 6 U, TID

REACTIONS (4)
  - Decubitus ulcer [Unknown]
  - Deafness [Not Recovered/Not Resolved]
  - Diabetic complication [Unknown]
  - Wrong technique in product usage process [Not Recovered/Not Resolved]
